FAERS Safety Report 6086976-8 (Version None)
Quarter: 2009Q1

REPORT INFORMATION
  Report Type: 
  Country: None (occurrence: None)
  Receive Date: 20090223
  Receipt Date: 20090213
  Transmission Date: 20090719
  Serious: Yes (Hospitalization)
  Sender: FDA-Public Use
  Company Number: FR-AVENTIS-200910576FR

PATIENT
  Age: 72 Year
  Sex: Female

DRUGS (7)
  1. LASILIX RETARD [Suspect]
     Route: 048
     Dates: end: 20090114
  2. TRIATEC                            /00885601/ [Suspect]
     Indication: DRUG USE FOR UNKNOWN INDICATION
     Route: 048
  3. ALDACTONE [Suspect]
     Route: 048
     Dates: end: 20090114
  4. PREVISCAN                          /00789001/ [Suspect]
     Indication: ATRIAL FIBRILLATION
     Route: 048
     Dates: end: 20090113
  5. HEMIGOXINE NATIVELLE [Suspect]
     Indication: ARRHYTHMIA
     Route: 048
     Dates: start: 20081201, end: 20090113
  6. BISOPROLOL FUMARATE [Concomitant]
     Indication: DRUG USE FOR UNKNOWN INDICATION
     Route: 048
  7. CORDARONE [Concomitant]
     Indication: DRUG USE FOR UNKNOWN INDICATION
     Route: 048

REACTIONS (5)
  - DRUG INTERACTION [None]
  - HAEMORRHAGE [None]
  - INTERNATIONAL NORMALISED RATIO INCREASED [None]
  - OVERDOSE [None]
  - RENAL FAILURE ACUTE [None]
